FAERS Safety Report 9939336 (Version 1)
Quarter: 2014Q1

REPORT INFORMATION
  Report Type: Report from Study
  Country: US (occurrence: US)
  Receive Date: 20140303
  Receipt Date: 20140303
  Transmission Date: 20141002
  Serious: Yes (Other)
  Sender: FDA-Public Use
  Company Number: US-ABBVIE-13P-163-1037440-00

PATIENT
  Sex: Female

DRUGS (8)
  1. HUMIRA [Suspect]
     Indication: PSORIASIS
     Dates: start: 2005, end: 2009
  2. HUMIRA [Suspect]
     Dates: start: 20120829
  3. TRIAMCINALONE [Concomitant]
     Indication: PSORIASIS
  4. LIDEX [Concomitant]
     Indication: PSORIASIS
  5. CLOBETASOL PROPIONATE [Concomitant]
     Indication: PSORIASIS
  6. CERAVE [Concomitant]
     Indication: PSORIASIS
  7. DILANTIN [Concomitant]
     Indication: EPILEPSY
  8. MYSOLINE [Concomitant]
     Indication: EPILEPSY

REACTIONS (5)
  - Cataract [Recovered/Resolved]
  - Psoriasis [Not Recovered/Not Resolved]
  - Injection site pain [Not Recovered/Not Resolved]
  - Malaise [Not Recovered/Not Resolved]
  - Cough [Recovered/Resolved]
